FAERS Safety Report 7920018-1 (Version None)
Quarter: 2011Q4

REPORT INFORMATION
  Report Type: 
  Country: None (occurrence: None)
  Receive Date: 20111117
  Receipt Date: 20111107
  Transmission Date: 20120403
  Serious: Yes (Death, Life-Threatening)
  Sender: FDA-Public Use
  Company Number: JP-BRISTOL-MYERS SQUIBB COMPANY-16219032

PATIENT
  Age: 35 Year
  Sex: Female

DRUGS (3)
  1. DOXORUBICIN HCL [Suspect]
     Indication: BURKITT'S LYMPHOMA
  2. CYCLOPHOSPHAMIDE [Suspect]
     Indication: BURKITT'S LYMPHOMA
  3. VINCRISTINE [Suspect]
     Indication: BURKITT'S LYMPHOMA

REACTIONS (5)
  - VENTRICULAR FIBRILLATION [None]
  - CARDIAC ARREST [None]
  - TUMOUR LYSIS SYNDROME [None]
  - RESPIRATORY FAILURE [None]
  - DISSEMINATED INTRAVASCULAR COAGULATION [None]
